FAERS Safety Report 18730286 (Version 1)
Quarter: 2021Q1

REPORT INFORMATION
  Report Type: Spontaneous
  Country: US (occurrence: US)
  Receive Date: 20210112
  Receipt Date: 20210112
  Transmission Date: 20210419
  Serious: No
  Sender: FDA-Public Use
  Company Number: US-PFIZER INC-2021013539

PATIENT
  Age: 61 Year
  Weight: 104.33 kg

DRUGS (2)
  1. TETRACYCLINE HCL [Suspect]
     Active Substance: TETRACYCLINE HYDROCHLORIDE
     Indication: FACIAL PARALYSIS
     Dosage: 100 MG, 2X/DAY (FOR 10 DAYS)
     Route: 048
     Dates: start: 202101
  2. SOLU?MEDROL [Suspect]
     Active Substance: METHYLPREDNISOLONE SODIUM SUCCINATE
     Indication: FACIAL PARALYSIS
     Dosage: 6 DF (FIRST DAY)
     Dates: start: 202101

REACTIONS (2)
  - Drug ineffective for unapproved indication [Unknown]
  - Off label use [Unknown]

NARRATIVE: CASE EVENT DATE: 202101
